FAERS Safety Report 7914722-9 (Version None)
Quarter: 2011Q4

REPORT INFORMATION
  Report Type: 
  Country: None (occurrence: None)
  Receive Date: 20111115
  Receipt Date: 20111109
  Transmission Date: 20120403
  Serious: Yes (Other)
  Sender: FDA-Public Use
  Company Number: PHEH2011US009097

PATIENT
  Sex: Male
  Weight: 67.574 kg

DRUGS (16)
  1. OXYCODONE HCL [Concomitant]
     Dosage: 5 MG, UNK
  2. MULTI-VITAMIN [Concomitant]
     Route: 065
  3. NITROSTAT [Concomitant]
     Dosage: 0.4 MG, UNK
     Route: 060
  4. METOCLOPRAMIDE [Concomitant]
     Dosage: 5 MG, UNK
     Route: 065
  5. ASCORBIC ACID [Concomitant]
     Dosage: 500 MG, UNK
     Route: 065
  6. CYCLOSPORINE [Concomitant]
     Route: 065
  7. EXJADE [Suspect]
     Dosage: 1000 MG, DAILY
     Route: 048
  8. CARVEDILOL [Concomitant]
     Dosage: 12.5 MG, UNK
     Route: 065
  9. ACYCLOVIR [Concomitant]
     Dosage: 200 MG, UNK
     Route: 065
  10. MAGNESIUM OXIDE [Concomitant]
     Route: 065
  11. NEORAL [Concomitant]
     Dosage: 25 MG, UNK
     Route: 065
  12. FLOMAX [Concomitant]
     Dosage: 0.4 MG, UNK
     Route: 065
  13. SIMVASTATIN [Concomitant]
     Dosage: 10 MG, UNK
  14. NORVASC [Concomitant]
     Dosage: 2.5 MG, UNK
     Route: 065
  15. TIZANIDINE HCL [Concomitant]
     Dosage: 4 MG, UNK
     Route: 065
  16. BACTRIM [Concomitant]
     Dosage: UNK
     Route: 065

REACTIONS (2)
  - BREATH SOUNDS ABNORMAL [None]
  - PNEUMONIA [None]
